FAERS Safety Report 4811302-9 (Version None)
Quarter: 2005Q4

REPORT INFORMATION
  Report Type: 
  Country: None (occurrence: None)
  Receive Date: 20051026
  Receipt Date: 20051026
  Transmission Date: 20060501
  Serious: Yes (Hospitalization)
  Sender: FDA-Public Use
  Company Number: None

PATIENT
  Sex: Male
  Weight: 122.9248 kg

DRUGS (1)
  1. NORTRIPTYLINE    10 MG [Suspect]
     Indication: DIABETIC NEUROPATHY
     Dosage: 20 MG - 40 MG   QHS  PO
     Route: 048
     Dates: start: 20050815, end: 20050826

REACTIONS (2)
  - DYSURIA [None]
  - MENTAL STATUS CHANGES [None]
